FAERS Safety Report 5357165-7 (Version None)
Quarter: 2007Q2

REPORT INFORMATION
  Report Type: 
  Country: None (occurrence: None)
  Receive Date: 20070612
  Receipt Date: 20070531
  Transmission Date: 20071010
  Serious: Yes (Life-Threatening)
  Sender: FDA-Public Use
  Company Number: CIP07001004

PATIENT
  Age: 88 Year
  Sex: Female

DRUGS (5)
  1. FURADANTIN [Suspect]
     Indication: URINARY TRACT INFECTION
     Dosage: 100 MG, ORAL
     Route: 048
     Dates: start: 20070521, end: 20070523
  2. SELEPARINA                      (HEPARIN-FRACTION, CALCIUM SALT) [Concomitant]
  3. ENAPREN                 (ENALAPRIL MALEATE) [Concomitant]
  4. CALCIUM                           (CALCIUM GLUCONATE) [Concomitant]
  5. LASITONE                     (SPIRONOLACTONE, FUROSEMIDE) [Concomitant]

REACTIONS (4)
  - ANGER [None]
  - JAUNDICE [None]
  - RENAL FAILURE ACUTE [None]
  - THROMBOTIC THROMBOCYTOPENIC PURPURA [None]
